FAERS Safety Report 10026358 (Version 2)
Quarter: 2014Q1

REPORT INFORMATION
  Report Type: Spontaneous
  Country: US (occurrence: US)
  Receive Date: 20140321
  Receipt Date: 20140321
  Transmission Date: 20141002
  Serious: No
  Sender: FDA-Public Use
  Company Number: US-ALLERGAN-1312547US

PATIENT
  Age: 90 Year
  Sex: Female
  Weight: 52.15 kg

DRUGS (4)
  1. LUMIGAN [Suspect]
     Indication: INTRAOCULAR PRESSURE INCREASED
     Dosage: 1 DROP IN EACH EYE AT BEDTIME
  2. SIMBRINZA [Suspect]
     Indication: GLAUCOMA
     Dosage: UNK, TWICE A DAY IN THE AM AND PM
     Dates: start: 20130611, end: 20130621
  3. AZOPT [Concomitant]
     Indication: INTRAOCULAR PRESSURE INCREASED
     Dosage: 2 GTT, TWICE A DAY
  4. COMBIGAN [Concomitant]
     Indication: INTRAOCULAR PRESSURE INCREASED
     Dosage: 2 GTT, TWICE A DAY

REACTIONS (5)
  - Vision blurred [Recovered/Resolved]
  - Lacrimation increased [Recovered/Resolved]
  - Eye irritation [Recovered/Resolved]
  - Eye pruritus [Recovered/Resolved]
  - Ocular hyperaemia [Recovered/Resolved]
